FAERS Safety Report 20448692 (Version 1)
Quarter: 2022Q1

REPORT INFORMATION
  Report Type: Spontaneous
  Country: GB (occurrence: GB)
  Receive Date: 20220209
  Receipt Date: 20220209
  Transmission Date: 20220423
  Serious: Yes (Hospitalization)
  Sender: FDA-Public Use
  Company Number: GB-LDELTA-NLLD0037821

PATIENT
  Age: 54 Year
  Sex: Male

DRUGS (9)
  1. CARBOPLATIN [Suspect]
     Active Substance: CARBOPLATIN
     Indication: Lung squamous cell carcinoma stage III
     Dosage: 2ND CYCLE 25JAN2022
     Dates: start: 20220104
  2. PEMBROLIZUMAB [Suspect]
     Active Substance: PEMBROLIZUMAB
     Indication: Lung squamous cell carcinoma stage III
     Dosage: 2ND CYCLE 25JAN2022
     Dates: start: 20220104
  3. TAXOL [Suspect]
     Active Substance: PACLITAXEL
     Indication: Lung squamous cell carcinoma stage III
     Dosage: 2ND CYCLE 25JAN2022
     Dates: start: 20220104
  4. CLOZAPINE [Suspect]
     Active Substance: CLOZAPINE
     Indication: Schizophrenia
     Dosage: 200MG ONCE IN THE MORNING, 225MG ONCE AT NIGHT
     Route: 048
     Dates: start: 20041216, end: 20220115
  5. ATENOLOL [Concomitant]
     Active Substance: ATENOLOL
     Dosage: 25 MG, 1X/DAY
     Route: 048
  6. ATORVASTATIN [Concomitant]
     Active Substance: ATORVASTATIN
     Dosage: 40 MG, 1X/DAY ONCE AT NIGHT
  7. METFORMIN [Concomitant]
     Active Substance: METFORMIN HYDROCHLORIDE
     Dosage: 500 MG, 3X/DAY
  8. VALPROATE SODIUM [Concomitant]
     Active Substance: VALPROATE SODIUM
     Dosage: 500 MG, 1X/DAY ONCE AT NIGHT
  9. SITAGLIPTIN [Concomitant]
     Active Substance: SITAGLIPTIN
     Dosage: 100 MG, 1X/DAY ONCE AT NIGHT

REACTIONS (8)
  - Acute kidney injury [Recovered/Resolved]
  - Diarrhoea [Unknown]
  - Neutropenia [Unknown]
  - Leukopenia [Unknown]
  - Antipsychotic drug level increased [Unknown]
  - White blood cell count decreased [Unknown]
  - Platelet count increased [Recovered/Resolved]
  - Platelet count decreased [Unknown]

NARRATIVE: CASE EVENT DATE: 20210909
